FAERS Safety Report 4885705-0 (Version None)
Quarter: 2006Q1

REPORT INFORMATION
  Report Type: 
  Country: None (occurrence: None)
  Receive Date: 20060120
  Receipt Date: 20060109
  Transmission Date: 20060701
  Serious: Yes (Hospitalization)
  Sender: FDA-Public Use
  Company Number: AU-ABBOTT-06P-008-0321843-00

PATIENT
  Sex: Female
  Weight: 15 kg

DRUGS (2)
  1. SEVORANE LIQUID FOR INHALATION [Suspect]
     Indication: SENSORY DISTURBANCE
     Dates: start: 20050902
  2. MIDAZOLAM [Suspect]
     Indication: PREMEDICATION
     Dates: start: 20050902, end: 20050902

REACTIONS (3)
  - HYPOTONIA [None]
  - SEDATION [None]
  - SOMNOLENCE [None]
